FAERS Safety Report 21309440 (Version 1)
Quarter: 2022Q3

REPORT INFORMATION
  Report Type: Spontaneous
  Country: US (occurrence: US)
  Receive Date: 20220908
  Receipt Date: 20220908
  Transmission Date: 20221026
  Serious: No
  Sender: FDA-Public Use
  Company Number: US-BRAINTREE LABORATORIES, INC.-2021BTE01027

PATIENT
  Age: 46 Year
  Sex: Female
  Weight: 63.492 kg

DRUGS (3)
  1. SUPREP BOWEL PREP [Suspect]
     Active Substance: MAGNESIUM SULFATE\POTASSIUM SULFATE\SODIUM SULFATE
     Indication: Colonoscopy
     Dosage: 2 X 6 OZ. BOTTLE, 1X
     Route: 048
     Dates: start: 202103, end: 202103
  2. TESTOSTERONE AND ESTROGEN [Concomitant]
  3. PROGESTERONE [Concomitant]
     Active Substance: PROGESTERONE
     Dosage: TAKES 1/2 OF EACH MONTH

REACTIONS (5)
  - Blood glucose increased [Recovered/Resolved]
  - Reaction to excipient [Recovered/Resolved]
  - Hyperhidrosis [Recovered/Resolved]
  - Asthenia [Recovered/Resolved]
  - Tremor [Recovered/Resolved]

NARRATIVE: CASE EVENT DATE: 20210301
